FAERS Safety Report 7659695-1 (Version None)
Quarter: 2011Q3

REPORT INFORMATION
  Report Type: 
  Country: None (occurrence: None)
  Receive Date: 20110805
  Receipt Date: 20110727
  Transmission Date: 20111222
  Serious: Yes (Hospitalization)
  Sender: FDA-Public Use
  Company Number: CA-JNJFOC-20110801004

PATIENT
  Sex: Male
  Weight: 72 kg

DRUGS (3)
  1. REMICADE [Suspect]
     Indication: CROHN'S DISEASE
     Route: 042
     Dates: start: 20070901, end: 20110701
  2. LOMOTIL [Concomitant]
     Route: 065
  3. METHOTREXATE [Concomitant]
     Route: 048

REACTIONS (1)
  - TESTIS CANCER [None]
